FAERS Safety Report 13179450 (Version 1)
Quarter: 2017Q1

REPORT INFORMATION
  Report Type: Spontaneous
  Country: GB (occurrence: GB)
  Receive Date: 20170202
  Receipt Date: 20170202
  Transmission Date: 20170428
  Serious: Yes (Other)
  Sender: FDA-Public Use
  Company Number: GB-GLAXOSMITHKLINE-GB2017010907

PATIENT
  Age: 54 Year
  Sex: Female
  Weight: 54 kg

DRUGS (2)
  1. PROCHLORPERAZINE. [Concomitant]
     Active Substance: PROCHLORPERAZINE
     Dosage: UNK
     Route: 065
  2. SCOPODERM TTS [Suspect]
     Active Substance: SCOPOLAMINE
     Indication: NAUSEA
     Dosage: 1 DF, UNK, EVERY THIRD DAY
     Route: 062
     Dates: start: 20161112, end: 20170111

REACTIONS (7)
  - Headache [Recovering/Resolving]
  - Decreased appetite [Recovering/Resolving]
  - Blister [Recovering/Resolving]
  - Nausea [Recovering/Resolving]
  - Withdrawal syndrome [Recovering/Resolving]
  - Chills [Recovering/Resolving]
  - Fatigue [Recovering/Resolving]

NARRATIVE: CASE EVENT DATE: 20170111
